FAERS Safety Report 10153234 (Version 1)
Quarter: 2014Q2

REPORT INFORMATION
  Report Type: Spontaneous
  Country: US (occurrence: US)
  Receive Date: 20140505
  Receipt Date: 20140505
  Transmission Date: 20141212
  Serious: No
  Sender: FDA-Public Use
  Company Number: US-BAXTER-2014BAX021002

PATIENT
  Age: 78 Year
  Sex: Female

DRUGS (6)
  1. DIANEAL LOW CALCIUM [Suspect]
     Indication: PERITONEAL DIALYSIS
     Route: 033
     Dates: start: 201402
  2. DIANEAL LOW CALCIUM [Suspect]
     Indication: PERITONEAL DIALYSIS
     Route: 033
     Dates: start: 201402
  3. DIANEAL LOW CALCIUM [Suspect]
     Indication: PERITONEAL DIALYSIS
     Route: 033
     Dates: start: 201402, end: 201404
  4. NOVOLIN [Concomitant]
     Indication: DIABETES MELLITUS
     Route: 058
  5. LEVEMIR [Concomitant]
     Indication: DIABETES MELLITUS
     Route: 058
  6. METOPROLOL [Concomitant]
     Indication: HYPERTENSION
     Route: 048

REACTIONS (5)
  - Blood glucose increased [Not Recovered/Not Resolved]
  - Blood pressure fluctuation [Recovering/Resolving]
  - Peripheral swelling [Not Recovered/Not Resolved]
  - Diabetes mellitus [Unknown]
  - Hypertension [Unknown]
